FAERS Safety Report 6357089-2 (Version None)
Quarter: 2009Q3

REPORT INFORMATION
  Report Type: 
  Country: None (occurrence: None)
  Receive Date: 20090910
  Receipt Date: 20090901
  Transmission Date: 20100115
  Serious: Yes (Other)
  Sender: FDA-Public Use
  Company Number: 1000008608

PATIENT
  Age: 81 Year
  Sex: Female

DRUGS (2)
  1. BYSTOLIC [Suspect]
     Indication: HYPERTENSION
     Dosage: 5 MG (5 MG, 1 IN 1 D), ORAL
     Route: 048
     Dates: start: 20090826
  2. ASPIRIN (325 MILLIGRAM, TABLETS) [Concomitant]

REACTIONS (2)
  - HYPERTENSION [None]
  - SWOLLEN TONGUE [None]
